FAERS Safety Report 15918496 (Version 1)
Quarter: 2019Q1

REPORT INFORMATION
  Report Type: Report from Study
  Country: US (occurrence: US)
  Receive Date: 20190205
  Receipt Date: 20190205
  Transmission Date: 20190417
  Serious: Yes (Hospitalization, Other)
  Sender: FDA-Public Use
  Company Number: US-ROCHE-2258801

PATIENT
  Age: 2 Year
  Sex: Male
  Weight: 14.7 kg

DRUGS (11)
  1. NUTROPIN AQ [Suspect]
     Active Substance: SOMATROPIN
     Indication: HYPOPITUITARISM
     Route: 058
  2. ADVIL [Concomitant]
     Active Substance: IBUPROFEN
     Route: 065
  3. SINGULAIR [Concomitant]
     Active Substance: MONTELUKAST SODIUM
     Dosage: BEDTIME
     Route: 048
  4. NUTROPIN AQ [Suspect]
     Active Substance: SOMATROPIN
     Route: 058
  5. ALBUTEROL HFA [Concomitant]
     Active Substance: ALBUTEROL SULFATE
     Dosage: 2-4 PUFFS; AS NEEDED
     Route: 065
  6. CORN STARCH [Concomitant]
     Active Substance: STARCH, CORN
     Dosage: 3-3.5 TABLE SPOONS; AT BEDTIME
     Route: 048
  7. ADVAIR HFA [Concomitant]
     Active Substance: FLUTICASONE PROPIONATE\SALMETEROL XINAFOATE
     Dosage: 2 PUFFS
     Route: 065
  8. ATROVENT HFA [Concomitant]
     Active Substance: IPRATROPIUM BROMIDE
     Indication: WHEEZING
  9. MOTRIN [Concomitant]
     Active Substance: IBUPROFEN
     Route: 065
  10. ATROVENT HFA [Concomitant]
     Active Substance: IPRATROPIUM BROMIDE
     Indication: COUGH
     Dosage: 2 PUFFS; AS NEEDED
     Route: 065
  11. ATROVENT HFA [Concomitant]
     Active Substance: IPRATROPIUM BROMIDE
     Indication: DYSPNOEA

REACTIONS (5)
  - Hypoglycaemia [Unknown]
  - Facial paralysis [Unknown]
  - Papilloedema [Unknown]
  - Decreased appetite [Unknown]
  - Halo vision [Unknown]

NARRATIVE: CASE EVENT DATE: 20180824
